FAERS Safety Report 6329189-4 (Version None)
Quarter: 2009Q3

REPORT INFORMATION
  Report Type: 
  Country: None (occurrence: None)
  Receive Date: 20090826
  Receipt Date: 20090812
  Transmission Date: 20100115
  Serious: No
  Sender: FDA-Public Use
  Company Number: US-SOLVAY-00209004548

PATIENT
  Age: 48 Year
  Sex: Female
  Weight: 91 kg

DRUGS (2)
  1. SPRINTEC [Concomitant]
     Indication: ORAL CONTRACEPTION
     Dosage: DAILY DOSE: 1 DOSAGE FORM
     Route: 048
  2. ANDROGEL [Suspect]
     Indication: ACCIDENTAL EXPOSURE
     Dosage: DAILY DOSE: 5 GRAM(S)
     Route: 062
     Dates: start: 20090601

REACTIONS (2)
  - MENSTRUAL DISORDER [None]
  - PYREXIA [None]
